FAERS Safety Report 9502438 (Version 1)
Quarter: 2013Q3

REPORT INFORMATION
  Report Type: Report from Study
  Country: JP (occurrence: JP)
  Receive Date: 20130906
  Receipt Date: 20130906
  Transmission Date: 20140515
  Serious: Yes (Other)
  Sender: FDA-Public Use
  Company Number: JP-009507513-1308JPN013016

PATIENT
  Age: 59 Year
  Sex: Male

DRUGS (2)
  1. PEGINTRON POWDER FOR INJECTION 150MICROG [Suspect]
     Dosage: UNK
     Route: 048
     Dates: start: 20120405, end: 20120912
  2. REBETOL CAPSULES 200MG [Suspect]
     Route: 048

REACTIONS (2)
  - Convulsion [Recovering/Resolving]
  - Epilepsy [Recovering/Resolving]
